FAERS Safety Report 14007139 (Version 6)
Quarter: 2018Q3

REPORT INFORMATION
  Report Type: Report from Study
  Country: US (occurrence: US)
  Receive Date: 20170925
  Receipt Date: 20180904
  Transmission Date: 20181010
  Serious: Yes (Other)
  Sender: FDA-Public Use
  Company Number: PHEH2017US030552

PATIENT
  Sex: Female

DRUGS (2)
  1. ALPHAGAN P [Suspect]
     Active Substance: BRIMONIDINE TARTRATE
     Indication: GLAUCOMA
     Dosage: BID
     Route: 065
     Dates: start: 20121211
  2. TRAVATAN Z [Suspect]
     Active Substance: TRAVOPROST
     Indication: GLAUCOMA
     Dosage: 1 DRP, QD
     Route: 061
     Dates: start: 20111014

REACTIONS (12)
  - Eye haemorrhage [Unknown]
  - Conjunctival haemorrhage [Recovered/Resolved]
  - Visual field defect [Unknown]
  - Hypersensitivity [Recovered/Resolved]
  - Malaise [Unknown]
  - Eye pruritus [Unknown]
  - Confusional state [Recovered/Resolved]
  - Pyrexia [Unknown]
  - Ocular hyperaemia [Unknown]
  - Cough [Recovered/Resolved]
  - Eye irritation [Unknown]
  - Eye pain [Unknown]
